FAERS Safety Report 13294487 (Version 1)
Quarter: 2017Q1

REPORT INFORMATION
  Report Type: Spontaneous
  Country: US (occurrence: US)
  Receive Date: 20170303
  Receipt Date: 20170303
  Transmission Date: 20170428
  Serious: Yes (Other)
  Sender: FDA-Public Use
  Company Number: US-JNJFOC-20161201168

PATIENT
  Sex: Female

DRUGS (3)
  1. XARELTO [Suspect]
     Active Substance: RIVAROXABAN
     Indication: DEEP VEIN THROMBOSIS
     Route: 048
     Dates: start: 2016
  2. XARELTO [Suspect]
     Active Substance: RIVAROXABAN
     Indication: DEEP VEIN THROMBOSIS
     Route: 048
     Dates: start: 2016
  3. WARFARIN [Suspect]
     Active Substance: WARFARIN
     Indication: DEEP VEIN THROMBOSIS
     Route: 065

REACTIONS (7)
  - Haematuria [Unknown]
  - International normalised ratio increased [Unknown]
  - Prothrombin time prolonged [Unknown]
  - Off label use [Unknown]
  - Prescribed underdose [Unknown]
  - Activated partial thromboplastin time prolonged [Unknown]
  - Headache [Unknown]

NARRATIVE: CASE EVENT DATE: 2016
